FAERS Safety Report 6047843-9 (Version None)
Quarter: 2009Q1

REPORT INFORMATION
  Report Type: 
  Country: None (occurrence: None)
  Receive Date: 20090123
  Receipt Date: 20090122
  Transmission Date: 20090719
  Serious: Yes (Other)
  Sender: FDA-Public Use
  Company Number: US-PFIZER INC-2008098161

PATIENT
  Sex: Female

DRUGS (4)
  1. NEURONTIN [Suspect]
     Indication: PAIN IN EXTREMITY
     Route: 048
     Dates: start: 19980101
  2. ATROVENT [Concomitant]
  3. XANAX [Concomitant]
  4. PROTONIX [Concomitant]

REACTIONS (6)
  - ANXIETY [None]
  - DRUG DEPENDENCE [None]
  - HEPATIC STEATOSIS [None]
  - INSOMNIA [None]
  - IRRITABILITY [None]
  - NAUSEA [None]
